FAERS Safety Report 6283009-5 (Version None)
Quarter: 2009Q3

REPORT INFORMATION
  Report Type: 
  Country: None (occurrence: None)
  Receive Date: 20090724
  Receipt Date: 20090721
  Transmission Date: 20100115
  Serious: Yes (Death, Hospitalization, Other)
  Sender: FDA-Public Use
  Company Number: PHHY2009BR30211

PATIENT
  Sex: Female

DRUGS (3)
  1. DIOVAN [Suspect]
     Indication: HYPERTENSION
     Dosage: 1 DF (160 MG) PER DAY
     Route: 048
     Dates: start: 20060101
  2. TENORETIC 100 [Concomitant]
     Indication: HYPERTENSION
     Dosage: 1 DF (50 MG) IN THE MORNING
     Route: 048
  3. ALDOMET [Concomitant]
     Indication: HYPERTENSION
     Dosage: 1 TABLET IN THE AFTERNOON
     Route: 048

REACTIONS (10)
  - ABDOMINAL DISTENSION [None]
  - CARDIAC ARREST [None]
  - DECREASED APPETITE [None]
  - DIARRHOEA [None]
  - INFECTION [None]
  - MULTI-ORGAN FAILURE [None]
  - OEDEMA PERIPHERAL [None]
  - PAIN IN EXTREMITY [None]
  - PANCREATIC DISORDER [None]
  - PANCREATIC NEOPLASM [None]
